FAERS Safety Report 8162651-0 (Version None)
Quarter: 2012Q1

REPORT INFORMATION
  Report Type: 
  Country: None (occurrence: None)
  Receive Date: 20120224
  Receipt Date: 20120223
  Transmission Date: 20120608
  Serious: Yes (Other)
  Sender: FDA-Public Use
  Company Number: DE-JNJFOC-20120209617

PATIENT
  Sex: Female

DRUGS (3)
  1. LORZAAR [Concomitant]
     Route: 065
  2. PALEXIA RETARD [Suspect]
     Indication: PRODUCT USED FOR UNKNOWN INDICATION
     Route: 048
     Dates: start: 20110101
  3. ARCOXIA [Concomitant]
     Route: 065

REACTIONS (2)
  - FATIGUE [None]
  - DEMENTIA [None]
